FAERS Safety Report 9166809 (Version 1)
Quarter: 2012Q4

REPORT INFORMATION
  Report Type: 
  Country: US (occurrence: US)
  Receive Date: 20121107
  Receipt Date: 20121107
  Transmission Date: 20130627
  Serious: Yes (Hospitalization, Other)
  Sender: FDA-Public Use
  Company Number: US-RB-046380-12

PATIENT
  Age: 32 Year
  Sex: Female

DRUGS (3)
  1. SUBOXONE FILM [Suspect]
     Indication: DRUG DEPENDENCE
     Dosage: Suboxone film
     Route: 060
     Dates: start: 2011, end: 201207
  2. SUBOXONE FILM [Suspect]
     Dosage: Suboxone film, various tapered doses
     Route: 060
     Dates: start: 201207, end: 20121024
  3. SUBOXONE TABLETS [Suspect]
     Indication: DRUG DEPENDENCE
     Route: 060
     Dates: start: 2006, end: 2011

REACTIONS (12)
  - Liver disorder [Recovered/Resolved]
  - Gastrointestinal disorder [Recovered/Resolved]
  - Rectovaginal septum abscess [Recovered/Resolved]
  - Diverticulitis [Recovered/Resolved]
  - Colonic fistula [Recovered/Resolved]
  - Underdose [Recovered/Resolved]
  - Pain [Recovered/Resolved]
  - Wrong technique in drug usage process [Recovered/Resolved]
  - Feeling of body temperature change [Not Recovered/Not Resolved]
  - Tremor [Not Recovered/Not Resolved]
  - Psychomotor hyperactivity [Not Recovered/Not Resolved]
  - Muscle spasms [Not Recovered/Not Resolved]
